FAERS Safety Report 13739511 (Version 2)
Quarter: 2019Q1

REPORT INFORMATION
  Report Type: Report from Study
  Country: JP (occurrence: JP)
  Receive Date: 20170710
  Receipt Date: 20190212
  Transmission Date: 20190417
  Serious: Yes (Hospitalization, Other)
  Sender: FDA-Public Use
  Company Number: JP-AMGEN-JPNCT2017102119

PATIENT
  Age: 82 Year
  Sex: Male

DRUGS (10)
  1. DARBEPOETIN ALFA [Suspect]
     Active Substance: DARBEPOETIN ALFA
     Dosage: 120 MUG, Q2WK
     Route: 058
     Dates: start: 20170501, end: 20170515
  2. PREDONINE [Concomitant]
     Active Substance: PREDNISOLONE
     Indication: MYELODYSPLASTIC SYNDROME
     Dosage: 5000 MG, UNK
     Route: 048
  3. DARBEPOETIN ALFA [Suspect]
     Active Substance: DARBEPOETIN ALFA
     Dosage: 120 MUG, Q2WK
     Route: 058
     Dates: start: 20170116, end: 20170313
  4. DARBEPOETIN ALFA [Suspect]
     Active Substance: DARBEPOETIN ALFA
     Indication: MYELODYSPLASTIC SYNDROME
     Dosage: 60 MUG, Q2WK
     Route: 058
     Dates: start: 20151029, end: 20151112
  5. DARBEPOETIN ALFA [Suspect]
     Active Substance: DARBEPOETIN ALFA
     Dosage: 120 MUG, Q2WK
     Route: 058
     Dates: start: 20151126, end: 20160331
  6. DARBEPOETIN ALFA [Suspect]
     Active Substance: DARBEPOETIN ALFA
     Dosage: 120 MUG, UNK
     Route: 058
     Dates: start: 20170322, end: 20170322
  7. DARBEPOETIN ALFA [Suspect]
     Active Substance: DARBEPOETIN ALFA
     Dosage: 240 MUG, Q2WK
     Route: 058
     Dates: end: 20170530
  8. DARBEPOETIN ALFA [Suspect]
     Active Substance: DARBEPOETIN ALFA
     Dosage: 120 MUG, Q2WK
     Route: 058
     Dates: start: 20160411, end: 20161219
  9. DARBEPOETIN ALFA [Suspect]
     Active Substance: DARBEPOETIN ALFA
     Dosage: 120 MUG, UNK
     Route: 058
     Dates: start: 20170410, end: 20170410
  10. PRIMOBOLAN-DEPOT [Concomitant]
     Active Substance: METHENOLONE ENANTHATE
     Indication: MYELODYSPLASTIC SYNDROME
     Dosage: 10 MG, UNK
     Route: 048
     Dates: end: 20160203

REACTIONS (1)
  - Blast cell count increased [Not Recovered/Not Resolved]

NARRATIVE: CASE EVENT DATE: 20170530
